FAERS Safety Report 13986879 (Version 3)
Quarter: 2017Q4

REPORT INFORMATION
  Report Type: Report from Study
  Country: JP (occurrence: JP)
  Receive Date: 20170919
  Receipt Date: 20171006
  Transmission Date: 20180321
  Serious: Yes (Hospitalization)
  Sender: FDA-Public Use
  Company Number: PHJP2017JP028103

PATIENT
  Age: 6 Year
  Sex: Female
  Weight: 21.9 kg

DRUGS (14)
  1. BRUFEN [Concomitant]
     Active Substance: IBUPROFEN
     Indication: JUVENILE IDIOPATHIC ARTHRITIS
     Dosage: 200 MG, BID
     Route: 048
     Dates: start: 20160328, end: 20160627
  2. PENLES [Concomitant]
     Active Substance: LIDOCAINE
     Indication: PAIN
     Dosage: 18 MG, QD
     Route: 062
     Dates: start: 20160626
  3. PRANLUKAST [Concomitant]
     Active Substance: PRANLUKAST
     Indication: ASTHMA
     Dosage: 140 MG, BID
     Route: 048
     Dates: start: 20150313
  4. MEPTIN [Concomitant]
     Active Substance: PROCATEROL HYDROCHLORIDE
     Indication: ASTHMA
     Dosage: 40 UG, BID
     Route: 048
     Dates: start: 20160616, end: 20160627
  5. CARBOCISTEINE [Concomitant]
     Active Substance: CARBOCYSTEINE
     Indication: ASTHMA
     Dosage: 400 MG, BID
     Route: 048
     Dates: start: 20160616, end: 20160627
  6. VALIXA [Concomitant]
     Active Substance: VALGANCICLOVIR
     Indication: PRODUCT USED FOR UNKNOWN INDICATION
     Dosage: UNK
     Route: 065
     Dates: start: 20160701, end: 20160703
  7. ILARIS [Suspect]
     Active Substance: CANAKINUMAB
     Indication: STILL^S DISEASE
     Dosage: 4 MG/KG, QMO
     Route: 058
     Dates: start: 20160623
  8. MARZULENE S [Concomitant]
     Active Substance: GLUTAMINE\SODIUM GUALENATE
     Indication: GASTRITIS PROPHYLAXIS
     Dosage: 0.8 G, BID
     Route: 048
     Dates: start: 20150819
  9. PREDONINE [Concomitant]
     Active Substance: PREDNISOLONE
     Dosage: 30 MG, UNK
     Route: 048
     Dates: start: 20160712, end: 20160802
  10. PREDNISOLONE. [Concomitant]
     Active Substance: PREDNISOLONE
     Indication: JUVENILE IDIOPATHIC ARTHRITIS
     Dosage: 3 MG, QD
     Route: 048
     Dates: start: 20160328, end: 20160628
  11. LIMETHASON [Concomitant]
     Active Substance: DEXAMETHASONE PALMITATE
     Indication: HISTIOCYTOSIS HAEMATOPHAGIC
     Dosage: UNK
     Route: 065
     Dates: start: 20160625, end: 20160707
  12. PREDONINE [Concomitant]
     Active Substance: PREDNISOLONE
     Indication: HISTIOCYTOSIS HAEMATOPHAGIC
     Dosage: 40 MG, UNK
     Route: 048
     Dates: start: 20160708, end: 20160711
  13. METHOTREXATE. [Concomitant]
     Active Substance: METHOTREXATE
     Indication: PRODUCT USED FOR UNKNOWN INDICATION
     Dosage: SUBJECT HAS NOT TAKEN MTX FOR 1 YEAR
     Route: 065
     Dates: end: 20160625
  14. PREDONINE [Concomitant]
     Active Substance: PREDNISOLONE
     Dosage: 20 MG, UNK
     Route: 048
     Dates: start: 20160803

REACTIONS (1)
  - Pyrexia [Recovered/Resolved]

NARRATIVE: CASE EVENT DATE: 20170908
